FAERS Safety Report 4505967-9 (Version None)
Quarter: 2004Q4

REPORT INFORMATION
  Report Type: 
  Country: None (occurrence: None)
  Receive Date: 20041119
  Receipt Date: 20041115
  Transmission Date: 20050328
  Serious: Yes (Other)
  Sender: FDA-Public Use
  Company Number: PHNU2004DE03859

PATIENT
  Age: 70 Year
  Sex: Male

DRUGS (2)
  1. ZOMETA [Suspect]
     Indication: OSTEOPOROSIS
     Dosage: 1 DF PER YEAR
     Route: 042
     Dates: start: 20040101, end: 20040101
  2. ZOMETA [Suspect]
     Dosage: 1 DF PER YEAR
     Route: 042
     Dates: start: 20030101, end: 20030101

REACTIONS (1)
  - BLOOD CREATINE PHOSPHOKINASE INCREASED [None]
